FAERS Safety Report 23535388 (Version 1)
Quarter: 2024Q1

REPORT INFORMATION
  Report Type: Spontaneous
  Country: DE (occurrence: None)
  Receive Date: 20240218
  Receipt Date: 20240218
  Transmission Date: 20240409
  Serious: Yes (Hospitalization, Other)
  Sender: FDA-Public Use
  Company Number: 2024A032866

PATIENT
  Sex: Male

DRUGS (2)
  1. DAPAGLIFLOZIN [Suspect]
     Active Substance: DAPAGLIFLOZIN
     Indication: Cardiac failure
     Route: 048
  2. DAPAGLIFLOZIN [Suspect]
     Active Substance: DAPAGLIFLOZIN
     Indication: Renal failure
     Route: 048

REACTIONS (13)
  - Ketoacidosis [Recovered/Resolved]
  - Pneumothorax [Unknown]
  - Myocardial infarction [Unknown]
  - Pulmonary oedema [Unknown]
  - Dilated cardiomyopathy [Unknown]
  - Atrial fibrillation [Unknown]
  - Chronic kidney disease [Unknown]
  - Normochromic anaemia [Unknown]
  - Hypothyroidism [Unknown]
  - Gout [Unknown]
  - Skin ulcer [Unknown]
  - Hyponatraemia [Unknown]
  - Hyperkalaemia [Unknown]
